FAERS Safety Report 5273345-3 (Version None)
Quarter: 2007Q1

REPORT INFORMATION
  Report Type: 
  Country: None (occurrence: None)
  Receive Date: 20070319
  Receipt Date: 20070228
  Transmission Date: 20070707
  Serious: Yes (Other)
  Sender: FDA-Public Use
  Company Number: 15832

PATIENT
  Age: 59 Year
  Sex: Female

DRUGS (1)
  1. PACLITAXEL [Suspect]
     Indication: UTERINE CANCER
     Dosage: 350 MG DAILY IV
     Route: 042
     Dates: start: 20070207, end: 20070207

REACTIONS (5)
  - FEELING HOT [None]
  - FLUSHING [None]
  - HEART RATE INCREASED [None]
  - INFUSION RELATED REACTION [None]
  - RESTLESSNESS [None]
